FAERS Safety Report 8921040 (Version 2)
Quarter: 2013Q2

REPORT INFORMATION
  Report Type: Report from Study
  Country: JP (occurrence: JP)
  Receive Date: 20121123
  Receipt Date: 20130606
  Transmission Date: 20140414
  Serious: No
  Sender: FDA-Public Use
  Company Number: JP-009507513-2012SP034179

PATIENT
  Age: 59 Year
  Sex: Female
  Weight: 50 kg

DRUGS (14)
  1. PEGINTRON [Suspect]
     Indication: CHRONIC HEPATITIS C
     Dosage: 1.5 MICROGRAM PER KILOGRAM, QW
     Route: 058
     Dates: start: 20120227, end: 20120416
  2. PEGINTRON [Suspect]
     Dosage: 80 MICROGRAM, QW
     Route: 058
     Dates: start: 20120507
  3. REBETOL [Suspect]
     Indication: CHRONIC HEPATITIS C
     Dosage: 400 MG, QD
     Route: 048
     Dates: start: 20120227, end: 20120304
  4. REBETOL [Suspect]
     Dosage: 200 MG, QD
     Route: 048
     Dates: start: 20120305, end: 20120416
  5. REBETOL [Suspect]
     Dosage: 200 MG, QD
     Route: 048
     Dates: start: 20120507, end: 20120626
  6. REBETOL [Suspect]
     Dosage: 400 MG, QD
     Route: 048
     Dates: start: 20120627
  7. TELAVIC [Suspect]
     Indication: CHRONIC HEPATITIS C
     Dosage: 1500 MG, QD
     Route: 048
     Dates: start: 20120227, end: 20120410
  8. ZITHROMAC [Concomitant]
     Indication: PNEUMONIA
     Dosage: 2 G, QD
     Route: 048
     Dates: start: 20120420, end: 20120420
  9. SULBACILLIN [Concomitant]
     Indication: PNEUMONIA
     Dosage: 6 G, QD
     Route: 042
     Dates: start: 20120420, end: 20120426
  10. COLDRIN (CHLOPHEDIANOL HYDROCHLORIDE) [Concomitant]
     Indication: PNEUMONIA
     Dosage: 75 MG, QD
     Route: 048
     Dates: start: 20120420, end: 20120501
  11. AMBROXOL HYDROCHLORIDE [Concomitant]
     Indication: PNEUMONIA
     Dosage: 45 MG, QD
     Route: 048
     Dates: start: 20120420, end: 20120501
  12. ALLEGRA [Concomitant]
     Indication: RHINITIS
     Dosage: 120 MG, QD
     Route: 048
     Dates: start: 20120618, end: 20120618
  13. CONFATANIN [Concomitant]
     Indication: PYREXIA
     Dosage: 60 MG, PRN, PER DAY
     Route: 048
     Dates: start: 20120723, end: 20120818
  14. REBAMIPIDE [Concomitant]
     Indication: PYREXIA
     Dosage: 100 MG, PRN, PER DAY
     Route: 048
     Dates: start: 20120723, end: 20120818

REACTIONS (1)
  - Anaemia [Recovered/Resolved]
